FAERS Safety Report 10504894 (Version 1)
Quarter: 2014Q3

REPORT INFORMATION
  Report Type: Spontaneous
  Country: US (occurrence: None)
  Receive Date: 20140926
  Receipt Date: 20140926
  Transmission Date: 20150326
  Serious: No
  Sender: FDA-Public Use
  Company Number: 1000068979

PATIENT
  Age: 68 Year
  Sex: Male

DRUGS (7)
  1. LINZESS [Suspect]
     Active Substance: LINACLOTIDE
     Indication: CONSTIPATION
     Dates: start: 20140618, end: 20140711
  2. ALPRAZOLAM (ALPRAZOLAM) (ALPRAZOLAM) [Concomitant]
     Active Substance: ALPRAZOLAM
  3. ASPIRIN (ACETYLSALICYLIC ACID) (ACETYLSALICYLIC ACID) [Concomitant]
     Active Substance: ASPIRIN
  4. LINZESS [Suspect]
     Active Substance: LINACLOTIDE
     Indication: CONSTIPATION
     Route: 048
     Dates: start: 201401, end: 2014
  5. NEXIUM (ESOMEPRAZOLE MAGNESIUM) (ESOMEPRAZOLAM MAGNESIUM) [Concomitant]
  6. PRILOSEC (OMEPRAZOLE) (OMEPRAZOLE) [Concomitant]
  7. RAMIPRIL (RAMIPRIL) (RAMIPRIL) [Concomitant]
     Active Substance: RAMIPRIL

REACTIONS (1)
  - Diarrhoea [None]

NARRATIVE: CASE EVENT DATE: 2014
